FAERS Safety Report 24375071 (Version 1)
Quarter: 2024Q3

REPORT INFORMATION
  Report Type: Spontaneous
  Country: IT (occurrence: IT)
  Receive Date: 20240927
  Receipt Date: 20240927
  Transmission Date: 20241017
  Serious: Yes (Death, Other)
  Sender: CELLTRION
  Company Number: IT-ROCHE-3349973

PATIENT

DRUGS (11)
  1. BEVACIZUMAB [Suspect]
     Active Substance: BEVACIZUMAB
     Indication: Hepatocellular carcinoma
     Dosage: 1230 MG
     Route: 065
     Dates: start: 20230123
  2. ATEZOLIZUMAB [Suspect]
     Active Substance: ATEZOLIZUMAB
     Indication: Hepatocellular carcinoma
     Dosage: 1200 MG
     Route: 042
     Dates: start: 20230123
  3. ALLOPURINOL [Concomitant]
     Active Substance: ALLOPURINOL
     Dosage: 1/DAY
     Dates: start: 20230417, end: 20230420
  4. PREDNISONE [Concomitant]
     Active Substance: PREDNISONE
     Dosage: EVERY 0.33 DAY
     Dates: start: 20230525
  5. AMLODIPINE BESYLATE\PERINDOPRIL ARGININE [Concomitant]
     Active Substance: AMLODIPINE BESYLATE\PERINDOPRIL ARGININE
     Dosage: EVERY 1 DAY
     Dates: start: 20230210
  6. CITRIC ACID;GLUCOSE;POTASSIUM CITRATE;SODIUM CHLORIDE [Concomitant]
     Dosage: EVERY 0.5 DAY
     Dates: start: 20230417
  7. CANRENONE [Concomitant]
     Active Substance: CANRENONE
     Dosage: EVERY 1 DAY
     Dates: start: 20230210
  8. DEURSIL [Concomitant]
     Active Substance: URSODIOL
     Dosage: EVERY 1 DAY
     Dates: start: 20230417, end: 20230420
  9. RIFAXIMIN [Concomitant]
     Active Substance: RIFAXIMIN
     Dosage: EVERY 0.5 DAY
     Dates: start: 20230420, end: 20230525
  10. LANSOPRAZOLE [Concomitant]
     Active Substance: LANSOPRAZOLE
     Dosage: EVERY 1 DAY
     Dates: start: 20230525
  11. CARVEDILOL [Concomitant]
     Active Substance: CARVEDILOL
     Dosage: EVERY 0.5 DAY
     Dates: start: 20230210

REACTIONS (9)
  - Death [Fatal]
  - Cholestasis [Recovered/Resolved]
  - Hyperuricaemia [Recovered/Resolved]
  - Hyponatraemia [Recovered/Resolved]
  - Palmar-plantar erythrodysaesthesia syndrome [Recovered/Resolved]
  - Mucosal inflammation [Not Recovered/Not Resolved]
  - Diarrhoea [Recovered/Resolved]
  - Diarrhoea [Recovered/Resolved]
  - Intentional product use issue [Unknown]

NARRATIVE: CASE EVENT DATE: 20230414
